FAERS Safety Report 6438849-6 (Version None)
Quarter: 2009Q4

REPORT INFORMATION
  Report Type: 
  Country: None (occurrence: None)
  Receive Date: 20091111
  Receipt Date: 20091111
  Transmission Date: 20100525
  Serious: Yes (Hospitalization)
  Sender: FDA-Public Use
  Company Number: None

PATIENT
  Age: 59 Year
  Sex: Female
  Weight: 90.7194 kg

DRUGS (1)
  1. AMLODIPINE [Suspect]
     Indication: HYPERTENSION
     Dosage: 5 MG, QD, PO
     Route: 048
     Dates: start: 20090919, end: 20090923

REACTIONS (3)
  - DIPLOPIA [None]
  - HALLUCINATION, VISUAL [None]
  - VISUAL IMPAIRMENT [None]
